FAERS Safety Report 8452171-8 (Version None)
Quarter: 2012Q2

REPORT INFORMATION
  Report Type: 
  Country: None (occurrence: None)
  Receive Date: 20120620
  Receipt Date: 20120402
  Transmission Date: 20120825
  Serious: No
  Sender: FDA-Public Use
  Company Number: US-VERTEX PHARMACEUTICALS INC.-AE-2012-004698

PATIENT
  Age: 34 Year
  Sex: Male

DRUGS (3)
  1. INCIVEK [Suspect]
     Indication: HEPATITIS C
     Route: 048
     Dates: start: 20120330
  2. RIBAVIRIN [Concomitant]
     Indication: HEPATITIS C
     Dates: start: 20120330
  3. PEGASYS [Concomitant]
     Indication: HEPATITIS C
     Dates: start: 20120330

REACTIONS (3)
  - RECTAL HAEMORRHAGE [None]
  - PROCTALGIA [None]
  - ANORECTAL DISCOMFORT [None]
